FAERS Safety Report 7995580-3 (Version None)
Quarter: 2011Q4

REPORT INFORMATION
  Report Type: 
  Country: None (occurrence: None)
  Receive Date: 20111220
  Receipt Date: 20111209
  Transmission Date: 20120403
  Serious: Yes (Hospitalization, Other)
  Sender: FDA-Public Use
  Company Number: US-MERCK-1109USA00517

PATIENT
  Age: 77 Year
  Sex: Female
  Weight: 74 kg

DRUGS (3)
  1. FOSAMAX [Suspect]
     Indication: OSTEOPOROSIS PROPHYLAXIS
     Route: 048
     Dates: start: 20000101
  2. FOSAMAX [Suspect]
     Route: 048
     Dates: start: 20000101
  3. ALENDRONATE SODIUM [Suspect]
     Route: 048
     Dates: end: 20100101

REACTIONS (41)
  - HYPOTHYROIDISM [None]
  - CORONARY ARTERY DISEASE [None]
  - ARTHRALGIA [None]
  - SPINAL OSTEOARTHRITIS [None]
  - BACK PAIN [None]
  - MYOCARDIAL INFARCTION [None]
  - HYPERLIPIDAEMIA [None]
  - PSEUDOMEMBRANOUS COLITIS [None]
  - MUSCULOSKELETAL DISCOMFORT [None]
  - HAEMATOMA [None]
  - FOOT FRACTURE [None]
  - DEPRESSION [None]
  - FEMUR FRACTURE [None]
  - PULMONARY OEDEMA [None]
  - TOOTH DISORDER [None]
  - CALCIUM DEFICIENCY [None]
  - DIVERTICULITIS [None]
  - VENTRICULAR TACHYCARDIA [None]
  - ABDOMINAL PAIN [None]
  - GAIT DISTURBANCE [None]
  - BLADDER DISORDER [None]
  - CHEST PAIN [None]
  - IN-STENT ARTERIAL RESTENOSIS [None]
  - THROMBOPHLEBITIS [None]
  - SINUS BRADYCARDIA [None]
  - DIVERTICULUM [None]
  - DIARRHOEA [None]
  - CLOSTRIDIAL INFECTION [None]
  - BLOOD CHOLESTEROL INCREASED [None]
  - VENOUS THROMBOSIS [None]
  - ANGINA UNSTABLE [None]
  - BASAL CELL CARCINOMA [None]
  - CARDIAC FAILURE CONGESTIVE [None]
  - HYPERTENSION [None]
  - MITRAL VALVE INCOMPETENCE [None]
  - SPONDYLOLISTHESIS [None]
  - ATRIAL FIBRILLATION [None]
  - CORONARY ARTERY STENOSIS [None]
  - ANXIETY [None]
  - STEROID THERAPY [None]
  - GROIN PAIN [None]
